FAERS Safety Report 7320107-9 (Version None)
Quarter: 2011Q1

REPORT INFORMATION
  Report Type: 
  Country: None (occurrence: None)
  Receive Date: 20110228
  Receipt Date: 20110110
  Transmission Date: 20110831
  Serious: No
  Sender: FDA-Public Use
  Company Number: US-BAYER-2011-003986

PATIENT
  Sex: Female
  Weight: 44 kg

DRUGS (1)
  1. ALEVE (CAPLET) [Suspect]
     Indication: ARTHRITIS
     Dosage: DAILY
     Route: 048
     Dates: start: 20110108

REACTIONS (1)
  - FEELING ABNORMAL [None]
